FAERS Safety Report 9466679 (Version 1)
Quarter: 2013Q3

REPORT INFORMATION
  Report Type: Spontaneous
  Country: US (occurrence: None)
  Receive Date: 20130816
  Receipt Date: 20130816
  Transmission Date: 20140515
  Serious: Yes (Other)
  Sender: FDA-Public Use
  Company Number: None

PATIENT
  Age: 45 Year
  Sex: Female
  Weight: 68.95 kg

DRUGS (3)
  1. SINGULAIR [Suspect]
  2. DEVAIR CREAM [Concomitant]
  3. ESTRACE [Concomitant]

REACTIONS (2)
  - Musculoskeletal stiffness [None]
  - Tongue discolouration [None]
